FAERS Safety Report 10554237 (Version 1)
Quarter: 2014Q4

REPORT INFORMATION
  Report Type: Spontaneous
  Country: DK (occurrence: DK)
  Receive Date: 20141030
  Receipt Date: 20141030
  Transmission Date: 20150529
  Serious: Yes (Other)
  Sender: FDA-Public Use
  Company Number: DK-TEVA-517213ISR

PATIENT
  Sex: Female

DRUGS (2)
  1. METHOTREXATE (METHOTREXATE SODIUM) [Suspect]
     Active Substance: METHOTREXATE SODIUM
     Indication: PRODUCT USED FOR UNKNOWN INDICATION
     Dates: start: 20130816, end: 201402
  2. FOLIMET [Concomitant]
     Indication: RHEUMATOID ARTHRITIS
     Dosage: 5 MILLIGRAM DAILY;
     Dates: start: 20130816, end: 201402

REACTIONS (4)
  - Genital haemorrhage [Recovered/Resolved]
  - Cystitis [Recovered/Resolved]
  - Gingival bleeding [Recovered/Resolved]
  - Nausea [Recovered/Resolved]
